FAERS Safety Report 14393198 (Version 1)
Quarter: 2018Q1

REPORT INFORMATION
  Report Type: Spontaneous
  Country: US (occurrence: US)
  Receive Date: 20180113
  Receipt Date: 20180113
  Transmission Date: 20180509
  Serious: No
  Sender: FDA-Public Use
  Company Number: None

PATIENT
  Age: 49 Year
  Sex: Female

DRUGS (2)
  1. MULTIVITAMIN CENTRUM [Concomitant]
  2. SEROVITAL [Suspect]
     Active Substance: DIETARY SUPPLEMENT
     Indication: ASTHENIA
     Dosage: ?          QUANTITY:2 CAPSULE(S);?
     Route: 048

REACTIONS (2)
  - Hyperthyroidism [None]
  - Weight decreased [None]

NARRATIVE: CASE EVENT DATE: 20171215
